FAERS Safety Report 22090293 (Version 1)
Quarter: 2023Q1

REPORT INFORMATION
  Report Type: Spontaneous
  Country: CA (occurrence: None)
  Receive Date: 20230313
  Receipt Date: 20230313
  Transmission Date: 20230418
  Serious: Yes (Other)
  Sender: FDA-Public Use
  Company Number: 2023A057315

PATIENT
  Age: 67 Year
  Sex: Male
  Weight: 245 kg

DRUGS (11)
  1. METOPROLOL [Suspect]
     Active Substance: METOPROLOL
  2. METOPROLOL [Suspect]
     Active Substance: METOPROLOL
  3. METOPROLOL [Suspect]
     Active Substance: METOPROLOL
  4. ROSUVASTATIN [Suspect]
     Active Substance: ROSUVASTATIN
     Indication: Atrial flutter
     Route: 048
  5. CANDESARTAN [Concomitant]
     Active Substance: CANDESARTAN
  6. INSULIN GLARGINE [Concomitant]
     Active Substance: INSULIN GLARGINE
     Dosage: 48 UNITS TWICE DAILY
  7. FUROSEMIDE [Concomitant]
     Active Substance: FUROSEMIDE
  8. APIXABAN [Concomitant]
     Active Substance: APIXABAN
  9. AMIODARONE [Concomitant]
     Active Substance: AMIODARONE
     Dosage: FOR 10 DAYS
  10. AMIODARONE [Concomitant]
     Active Substance: AMIODARONE
  11. AMIODARONE [Concomitant]
     Active Substance: AMIODARONE

REACTIONS (4)
  - Presyncope [Unknown]
  - Hypotension [Unknown]
  - Off label use [Unknown]
  - Drug ineffective for unapproved indication [Unknown]
